FAERS Safety Report 4680435-2 (Version None)
Quarter: 2005Q2

REPORT INFORMATION
  Report Type: 
  Country: None (occurrence: None)
  Receive Date: 20050602
  Receipt Date: 20041129
  Transmission Date: 20051028
  Serious: Yes (Hospitalization)
  Sender: FDA-Public Use
  Company Number: US-MERCK-0411USA04115

PATIENT
  Age: 71 Year
  Sex: Female

DRUGS (2)
  1. VIOXX [Suspect]
     Indication: ARTHRITIS
     Route: 048
     Dates: start: 19990101
  2. VALIUM [Concomitant]
     Route: 065

REACTIONS (8)
  - ANXIETY [None]
  - ARTHRITIS [None]
  - AURICULAR SWELLING [None]
  - CARDIAC DISORDER [None]
  - DIZZINESS [None]
  - PALPITATIONS [None]
  - SYNCOPE [None]
  - VOMITING [None]
